FAERS Safety Report 12633474 (Version 1)
Quarter: 2016Q3

REPORT INFORMATION
  Report Type: Spontaneous
  Country: US (occurrence: None)
  Receive Date: 20160808
  Receipt Date: 20160808
  Transmission Date: 20161109
  Serious: Yes (Other)
  Sender: FDA-Public Use
  Company Number: None

PATIENT
  Age: 29 Year
  Sex: Male
  Weight: 86.18 kg

DRUGS (9)
  1. HCTZ [Concomitant]
     Active Substance: HYDROCHLOROTHIAZIDE
  2. MELATONIN [Concomitant]
     Active Substance: MELATONIN
  3. HYOSCYAMINE. [Concomitant]
     Active Substance: HYOSCYAMINE
  4. STRATTERA [Suspect]
     Active Substance: ATOMOXETINE HYDROCHLORIDE
     Indication: ATTENTION DEFICIT/HYPERACTIVITY DISORDER
     Dosage: 30 CAPSULE(S) IN THE MORNING TAKEN BY MOUTH
     Route: 048
     Dates: start: 20160101
  5. MULTI VITAMIN [Concomitant]
     Active Substance: VITAMINS
  6. CELEBREX [Concomitant]
     Active Substance: CELECOXIB
  7. ZOLPIDEM [Concomitant]
     Active Substance: ZOLPIDEM\ZOLPIDEM TARTRATE
  8. LOSARTAN. [Concomitant]
     Active Substance: LOSARTAN
  9. VITAMIN D [Concomitant]
     Active Substance: CHOLECALCIFEROL

REACTIONS (4)
  - Erectile dysfunction [None]
  - Condition aggravated [None]
  - Ejaculation failure [None]
  - Dysuria [None]

NARRATIVE: CASE EVENT DATE: 20160101
